FAERS Safety Report 14165178 (Version 3)
Quarter: 2017Q4

REPORT INFORMATION
  Report Type: Spontaneous
  Country: IT (occurrence: IT)
  Receive Date: 20171107
  Receipt Date: 20171220
  Transmission Date: 20180321
  Serious: Yes (Other)
  Sender: FDA-Public Use
  Company Number: PHHY2017IT162575

PATIENT
  Age: 16 Year
  Sex: Female

DRUGS (5)
  1. PREDNISONE. [Suspect]
     Active Substance: PREDNISONE
     Indication: MORPHOEA
     Dosage: 2 MG/KG, QD
     Route: 065
  2. IMATINIB [Suspect]
     Active Substance: IMATINIB
     Indication: MORPHOEA
     Dosage: 200 MG, QD
     Route: 065
  3. METHOTREXATE. [Suspect]
     Active Substance: METHOTREXATE
     Indication: MORPHOEA
     Dosage: 15 MG/M2, QW
     Route: 065
  4. METHYLPREDNISOLONE. [Concomitant]
     Active Substance: METHYLPREDNISOLONE
     Indication: MORPHOEA
     Dosage: 30 MG/KG, UNK
     Route: 065
  5. MYCOPHENOLATE MOFETIL. [Concomitant]
     Active Substance: MYCOPHENOLATE MOFETIL
     Indication: MORPHOEA
     Dosage: 700 MG/M2, QD
     Route: 065

REACTIONS (5)
  - Morphoea [Unknown]
  - Therapy non-responder [Unknown]
  - Disease progression [Unknown]
  - Product use in unapproved indication [Unknown]
  - Growth retardation [Unknown]
